FAERS Safety Report 23196507 (Version 1)
Quarter: 2023Q4

REPORT INFORMATION
  Report Type: Spontaneous
  Country: US (occurrence: None)
  Receive Date: 20231116
  Receipt Date: 20231116
  Transmission Date: 20240110
  Serious: Yes (Death)
  Sender: FDA-Public Use
  Company Number: None

PATIENT
  Age: 62 Year
  Sex: Male
  Weight: 100 kg

DRUGS (2)
  1. RIVAROXABAN [Suspect]
     Active Substance: RIVAROXABAN
     Indication: Deep vein thrombosis
     Dosage: FREQUENCY : DAILY;?
     Route: 048
     Dates: start: 20190823, end: 20230923
  2. RIVAROXABAN [Suspect]
     Active Substance: RIVAROXABAN
     Indication: Pulmonary embolism

REACTIONS (7)
  - Hypertension [None]
  - Altered state of consciousness [None]
  - Drug screen positive [None]
  - Drug abuse [None]
  - Amphetamines positive [None]
  - Cerebral haematoma [None]
  - Cerebral mass effect [None]

NARRATIVE: CASE EVENT DATE: 20230923
